FAERS Safety Report 7564312-5 (Version None)
Quarter: 2011Q2

REPORT INFORMATION
  Report Type: 
  Country: None (occurrence: None)
  Receive Date: 20110622
  Receipt Date: 20110422
  Transmission Date: 20111010
  Serious: No
  Sender: FDA-Public Use
  Company Number: US-ALLERGAN-1105688US

PATIENT
  Age: 72 Year
  Sex: Male

DRUGS (1)
  1. LUMIGAN [Suspect]
     Indication: ABNORMAL SENSATION IN EYE
     Dosage: 2 GTT, QHS
     Route: 047
     Dates: start: 20110408

REACTIONS (3)
  - EYE IRRITATION [None]
  - OCULAR HYPERAEMIA [None]
  - ABNORMAL SENSATION IN EYE [None]
